FAERS Safety Report 10033268 (Version 2)
Quarter: 2014Q1

REPORT INFORMATION
  Report Type: Spontaneous
  Country: US (occurrence: US)
  Receive Date: 20140324
  Receipt Date: 20140324
  Transmission Date: 20141002
  Serious: Yes (Disabling)
  Sender: FDA-Public Use
  Company Number: US-GE HEALTHCARE MEDICAL DIAGNOSTICS-OSCN-PR-0704S-0154

PATIENT
  Sex: Female

DRUGS (6)
  1. GADOLINIUM (UNSPECIFIED) [Suspect]
     Indication: PRODUCT USED FOR UNKNOWN INDICATION
     Route: 042
     Dates: start: 20030905, end: 20030905
  2. GADOLINIUM (UNSPECIFIED) [Suspect]
     Route: 042
     Dates: start: 19971010, end: 19971010
  3. MAGNEVIST [Suspect]
     Indication: ARTHRALGIA
     Route: 042
     Dates: start: 20040401, end: 20040401
  4. MAGNEVIST [Suspect]
     Indication: LIVER DISORDER
     Route: 042
     Dates: start: 20041101, end: 20041101
  5. MAGNEVIST [Suspect]
     Indication: PRODUCT USED FOR UNKNOWN INDICATION
     Route: 042
     Dates: start: 20041211, end: 20041211
  6. MAGNEVIST [Suspect]
     Indication: CONVULSION
     Route: 042
     Dates: start: 20050422, end: 20050422

REACTIONS (1)
  - Nephrogenic systemic fibrosis [Unknown]
